FAERS Safety Report 11883338 (Version 1)
Quarter: 2015Q4

REPORT INFORMATION
  Report Type: Spontaneous
  Country: FR (occurrence: FR)
  Receive Date: 20151231
  Receipt Date: 20151231
  Transmission Date: 20160305
  Serious: Yes (Other)
  Sender: FDA-Public Use
  Company Number: FR-PRINSTON PHARMACEUTICAL INC.-2015PRN00152

PATIENT
  Age: 25 Year
  Sex: Male

DRUGS (6)
  1. RISPERIDONE. [Suspect]
     Active Substance: RISPERIDONE
     Indication: AGGRESSION
  2. LOXAPINE. [Suspect]
     Active Substance: LOXAPINE
     Indication: AGGRESSION
  3. LEVOMEPROMAZINE [Concomitant]
     Active Substance: LEVOMEPROMAZINE
     Indication: AGITATION
     Dosage: 300 MG, 1X/DAY
  4. LOXAPINE. [Suspect]
     Active Substance: LOXAPINE
     Indication: AGITATION
     Dosage: 400 MG, 1X/DAY
     Route: 048
     Dates: start: 201410, end: 2014
  5. RISPERIDONE. [Suspect]
     Active Substance: RISPERIDONE
     Indication: AGITATION
     Dosage: 4 MG, 1X/DAY
     Route: 048
     Dates: start: 201410, end: 2014
  6. LEVOMEPROMAZINE [Concomitant]
     Active Substance: LEVOMEPROMAZINE
     Indication: AGGRESSION

REACTIONS (4)
  - Rhabdomyolysis [Recovered/Resolved]
  - Deep vein thrombosis [Recovered/Resolved]
  - Renal tubular necrosis [None]
  - Acute kidney injury [Recovered/Resolved]

NARRATIVE: CASE EVENT DATE: 2014
